FAERS Safety Report 6186243-8 (Version None)
Quarter: 2009Q2

REPORT INFORMATION
  Report Type: 
  Country: None (occurrence: None)
  Receive Date: 20090511
  Receipt Date: 20090501
  Transmission Date: 20091009
  Serious: Yes (Other)
  Sender: FDA-Public Use
  Company Number: PHHY2008DE15676

PATIENT
  Sex: Female
  Weight: 80 kg

DRUGS (4)
  1. EXJADE [Suspect]
     Indication: SERUM FERRITIN INCREASED
     Dosage: 1000 MG/DAY
     Route: 048
     Dates: start: 20071027, end: 20080411
  2. EXJADE [Interacting]
     Dosage: 1000 MG/DAY
     Route: 048
     Dates: start: 20080412, end: 20080524
  3. DICLOFENAC [Interacting]
     Indication: ARTHROPATHY
     Dosage: 50 MG, BID
     Route: 048
     Dates: start: 20080421, end: 20080524
  4. DRUG THERAPY NOS [Concomitant]
     Indication: MYELOID LEUKAEMIA
     Dosage: UNK
     Dates: start: 20080421, end: 20080524

REACTIONS (5)
  - AMMONIA INCREASED [None]
  - DRUG INTERACTION [None]
  - HEPATIC ENCEPHALOPATHY [None]
  - HEPATITIS TOXIC [None]
  - LIVER FUNCTION TEST ABNORMAL [None]
